FAERS Safety Report 14542492 (Version 1)
Quarter: 2018Q1

REPORT INFORMATION
  Report Type: Spontaneous
  Country: CH (occurrence: CH)
  Receive Date: 20180216
  Receipt Date: 20180216
  Transmission Date: 20180509
  Serious: Yes (Other)
  Sender: FDA-Public Use
  Company Number: CH-OTSUKA-DJ201404329

PATIENT
  Age: 50 Year
  Sex: Male

DRUGS (3)
  1. ABILIFY [Suspect]
     Active Substance: ARIPIPRAZOLE
     Indication: PSYCHOTIC DISORDER
     Dosage: 30 MG, UNK
     Route: 048
     Dates: start: 2010
  2. HALDOL [Concomitant]
     Active Substance: HALOPERIDOL
     Indication: PSYCHOTIC DISORDER
     Dosage: 2 MG, UNK
     Route: 065
  3. HALDOL [Concomitant]
     Active Substance: HALOPERIDOL
     Dosage: 4 MG, UNK
     Route: 065

REACTIONS (2)
  - Psychotic disorder [Recovered/Resolved]
  - Off label use [Unknown]

NARRATIVE: CASE EVENT DATE: 2010
